FAERS Safety Report 8346118-2 (Version None)
Quarter: 2012Q2

REPORT INFORMATION
  Report Type: 
  Country: None (occurrence: None)
  Receive Date: 20120504
  Receipt Date: 20120419
  Transmission Date: 20120825
  Serious: Yes (Death, Hospitalization)
  Sender: FDA-Public Use
  Company Number: ENTC2012-0129

PATIENT
  Age: 78 Year
  Sex: Male

DRUGS (1)
  1. STALEVO 100 [Suspect]
     Indication: DEMENTIA WITH LEWY BODIES
     Dosage: QUARTER OF TABLET EVERY HOUR HOURS, INTRAVENOUS
     Route: 042
     Dates: start: 20120201

REACTIONS (6)
  - OFF LABEL USE [None]
  - KIDNEY INFECTION [None]
  - INCORRECT ROUTE OF DRUG ADMINISTRATION [None]
  - CEREBROVASCULAR ACCIDENT [None]
  - LUNG INFECTION [None]
  - WRONG TECHNIQUE IN DRUG USAGE PROCESS [None]
